FAERS Safety Report 4691939-0 (Version None)
Quarter: 2005Q2

REPORT INFORMATION
  Report Type: 
  Country: None (occurrence: None)
  Receive Date: 20050614
  Receipt Date: 20050606
  Transmission Date: 20051028
  Serious: Yes (Congenital Anomaly)
  Sender: FDA-Public Use
  Company Number: 8009186

PATIENT
  Sex: Male
  Weight: 3.7 kg

DRUGS (4)
  1. KEPPRA [Suspect]
     Dosage: 1500 MG /D TRP
     Dates: end: 20050216
  2. TEGRETOL [Suspect]
     Indication: EPILEPSY
     Dosage: 1200 MG /D TRP
     Dates: start: 20040101, end: 20050216
  3. FOLIC ACID [Concomitant]
  4. ALLEGRA [Concomitant]

REACTIONS (2)
  - DRUG EXPOSURE DURING PREGNANCY [None]
  - HYPOSPADIAS [None]
